FAERS Safety Report 21440510 (Version 2)
Quarter: 2022Q4

REPORT INFORMATION
  Report Type: Spontaneous
  Country: TR (occurrence: TR)
  Receive Date: 20221011
  Receipt Date: 20221018
  Transmission Date: 20230112
  Serious: Yes (Other)
  Sender: FDA-Public Use
  Company Number: TR-PFIZER INC-PV202200076753

PATIENT
  Age: 5 Year
  Sex: Male

DRUGS (1)
  1. SOMATROPIN [Suspect]
     Active Substance: SOMATROPIN
     Indication: Growth hormone deficiency
     Dosage: 1.5 MG, DAILY
     Route: 058
     Dates: start: 20220930, end: 20221004

REACTIONS (2)
  - Wrong technique in device usage process [Unknown]
  - Accidental overdose [Unknown]

NARRATIVE: CASE EVENT DATE: 20220930
